FAERS Safety Report 13954145 (Version 1)
Quarter: 2017Q3

REPORT INFORMATION
  Report Type: Report from Study
  Country: CN (occurrence: CN)
  Receive Date: 20170911
  Receipt Date: 20170911
  Transmission Date: 20171128
  Serious: Yes (Other)
  Sender: FDA-Public Use
  Company Number: CN-BAYER-2017-173832

PATIENT

DRUGS (6)
  1. OSELTAMIVIR [Suspect]
     Active Substance: OSELTAMIVIR
     Indication: INFLUENZA
     Dosage: 75 MG, BID
  2. CLARITHROMYCIN. [Suspect]
     Active Substance: CLARITHROMYCIN
     Indication: INFLUENZA
     Dosage: 500 MG, BID
  3. AMOXICILLIN W/CLAVULANIC ACID [Concomitant]
     Active Substance: AMOXICILLIN\CLAVULANIC ACID
     Indication: PNEUMONIA
     Dosage: 1 G, BID
  4. NAPROXEN. [Suspect]
     Active Substance: NAPROXEN
     Indication: INFLUENZA
     Dosage: 200 MG, BID
  5. OSELTAMIVIR [Suspect]
     Active Substance: OSELTAMIVIR
     Indication: INFLUENZA
     Dosage: 75 MG, BID
  6. ESOMEPRAZOLE [Concomitant]
     Active Substance: ESOMEPRAZOLE
     Indication: GASTRIC DISORDER
     Dosage: 20 MG, QD

REACTIONS (1)
  - Blood creatinine increased [None]
